FAERS Safety Report 8677508 (Version 2)
Quarter: 2012Q4

REPORT INFORMATION
  Report Type: 
  Country: GB (occurrence: GB)
  Receive Date: 20120723
  Receipt Date: 20120910
  Transmission Date: 20130627
  Serious: No
  Sender: FDA-Public Use
  Company Number: PHFR2012GB003896

PATIENT
  Age: 46 Year
  Sex: Female
  Weight: 90.6 kg

DRUGS (4)
  1. CLOZARIL [Suspect]
     Indication: SCHIZOPHRENIA, PARANOID TYPE
     Dosage: 450 mg, daily
     Route: 048
     Dates: start: 20100907
  2. PREGABALIN [Concomitant]
     Dosage: 400 ug, daily
     Route: 048
     Dates: start: 20100907
  3. KWELLS [Concomitant]
     Indication: SALIVARY HYPERSECRETION
     Dosage: 300 ug, daily
     Route: 048
  4. OMACOR [Concomitant]

REACTIONS (10)
  - Oropharyngeal pain [Recovered/Resolved]
  - C-reactive protein increased [Recovered/Resolved]
  - Malaise [Recovered/Resolved]
  - Chills [Recovered/Resolved]
  - Body temperature increased [Recovered/Resolved]
  - Haemoglobin increased [Unknown]
  - Nausea [Recovered/Resolved]
  - Diarrhoea [Recovered/Resolved]
  - White blood cell count increased [Recovered/Resolved]
  - Neutrophil count increased [Recovered/Resolved]
